FAERS Safety Report 22230874 (Version 12)
Quarter: 2025Q2

REPORT INFORMATION
  Report Type: Spontaneous
  Country: CA (occurrence: CA)
  Receive Date: 20230420
  Receipt Date: 20250422
  Transmission Date: 20250717
  Serious: Yes (Other)
  Sender: CELLTRION
  Company Number: CA-CELLTRION INC.-2022CA007254

PATIENT

DRUGS (21)
  1. INFLECTRA [Suspect]
     Active Substance: INFLIXIMAB-DYYB
     Indication: Colitis ulcerative
     Route: 042
     Dates: start: 20220211, end: 20220211
  2. INFLECTRA [Suspect]
     Active Substance: INFLIXIMAB-DYYB
     Route: 042
     Dates: start: 20220226, end: 20230221
  3. INFLECTRA [Suspect]
     Active Substance: INFLIXIMAB-DYYB
     Route: 042
     Dates: start: 20220325
  4. INFLECTRA [Suspect]
     Active Substance: INFLIXIMAB-DYYB
     Route: 042
     Dates: start: 20220621
  5. INFLECTRA [Suspect]
     Active Substance: INFLIXIMAB-DYYB
     Route: 042
     Dates: start: 20220715
  6. INFLECTRA [Suspect]
     Active Substance: INFLIXIMAB-DYYB
     Route: 042
     Dates: start: 20220908
  7. INFLECTRA [Suspect]
     Active Substance: INFLIXIMAB-DYYB
     Route: 042
     Dates: start: 20221103
  8. INFLECTRA [Suspect]
     Active Substance: INFLIXIMAB-DYYB
     Route: 042
     Dates: start: 20221227
  9. INFLECTRA [Suspect]
     Active Substance: INFLIXIMAB-DYYB
     Route: 042
     Dates: start: 20230221
  10. INFLECTRA [Suspect]
     Active Substance: INFLIXIMAB-DYYB
     Route: 042
     Dates: start: 20230418
  11. INFLECTRA [Suspect]
     Active Substance: INFLIXIMAB-DYYB
     Route: 042
     Dates: start: 20230614
  12. INFLECTRA [Suspect]
     Active Substance: INFLIXIMAB-DYYB
     Route: 042
     Dates: start: 20240516
  13. INFLECTRA [Suspect]
     Active Substance: INFLIXIMAB-DYYB
     Route: 042
     Dates: start: 20240710
  14. INFLECTRA [Suspect]
     Active Substance: INFLIXIMAB-DYYB
     Route: 042
     Dates: start: 20241224
  15. INFLECTRA [Suspect]
     Active Substance: INFLIXIMAB-DYYB
     Route: 042
     Dates: start: 20250218
  16. ESTRADIOL [Concomitant]
     Active Substance: ESTRADIOL
  17. IMURAN [Concomitant]
     Active Substance: AZATHIOPRINE
     Route: 048
  18. IMMUNOGLOBULIN G HUMAN;PROTEIN [Concomitant]
     Dates: start: 20240703
  19. PREDNISONE [Concomitant]
     Active Substance: PREDNISONE
     Route: 065
     Dates: start: 20220201, end: 20220404
  20. PREDNISONE [Concomitant]
     Active Substance: PREDNISONE
  21. PROGESTERONE [Concomitant]
     Active Substance: PROGESTERONE

REACTIONS (21)
  - Haematochezia [Recovered/Resolved]
  - Condition aggravated [Recovered/Resolved]
  - Rash [Recovering/Resolving]
  - Rash macular [Recovering/Resolving]
  - Therapeutic product effect incomplete [Unknown]
  - Balance disorder [Not Recovered/Not Resolved]
  - Brain fog [Recovered/Resolved]
  - Abnormal faeces [Not Recovered/Not Resolved]
  - Dyschezia [Not Recovered/Not Resolved]
  - Mucous stools [Not Recovered/Not Resolved]
  - Sleep disorder due to general medical condition, insomnia type [Unknown]
  - Anal incontinence [Unknown]
  - Haemorrhoids [Unknown]
  - Abdominal distension [Unknown]
  - Proctalgia [Unknown]
  - Proctitis [Unknown]
  - Fatigue [Recovering/Resolving]
  - Norovirus infection [Unknown]
  - Confusional state [Not Recovered/Not Resolved]
  - Inappropriate schedule of product administration [Unknown]
  - Off label use [Unknown]

NARRATIVE: CASE EVENT DATE: 20220101
